FAERS Safety Report 10051450 (Version 1)
Quarter: 2014Q2

REPORT INFORMATION
  Report Type: Spontaneous
  Country: VE (occurrence: VE)
  Receive Date: 20140401
  Receipt Date: 20140401
  Transmission Date: 20141212
  Serious: Yes (Life-Threatening, Hospitalization, Disabling)
  Sender: FDA-Public Use
  Company Number: VE-B.I. PHARMACEUTICALS,INC./RIDGEFIELD-2014-BI-14265VB

PATIENT
  Age: 48 Year
  Sex: Male

DRUGS (6)
  1. PRADAXA [Suspect]
     Indication: ATRIAL FIBRILLATION
     Dosage: 300 MG
     Route: 065
     Dates: start: 201210
  2. AMIODARONE [Concomitant]
     Route: 065
     Dates: start: 201210
  3. CLOPIDOGREL [Concomitant]
     Route: 065
  4. BETABLOCKER [Concomitant]
     Route: 065
  5. ANGIOTENSINE II ANTAGONIST/HYDROCHLOROTIAZIDE [Concomitant]
     Route: 065
  6. ATORVASTATINE [Concomitant]
     Route: 065

REACTIONS (1)
  - Ischaemic stroke [Recovered/Resolved with Sequelae]
